FAERS Safety Report 23483354 (Version 2)
Quarter: 2024Q1

REPORT INFORMATION
  Report Type: Spontaneous
  Country: IT (occurrence: IT)
  Receive Date: 20240205
  Receipt Date: 20240315
  Transmission Date: 20240410
  Serious: Yes (Hospitalization, Other)
  Sender: FDA-Public Use
  Company Number: None

PATIENT
  Age: 17 Year
  Sex: Female

DRUGS (2)
  1. OLANZAPINE [Suspect]
     Active Substance: OLANZAPINE
     Indication: Mood altered
     Dosage: 17 TABLETS OF 2.5MG OLANZAPINE
     Route: 048
  2. LORAZEPAM [Suspect]
     Active Substance: LORAZEPAM
     Indication: Mood altered
     Dosage: 1 MILLIGRAM(40 TABLETS OF 1MG LORAZEPAM)
     Route: 048

REACTIONS (5)
  - Mood altered [Recovering/Resolving]
  - Disorganised speech [Recovering/Resolving]
  - Cognitive disorder [Recovering/Resolving]
  - Substance abuse [Recovering/Resolving]
  - Drug abuse [Unknown]

NARRATIVE: CASE EVENT DATE: 20211109
